FAERS Safety Report 5866967-X (Version None)
Quarter: 2008Q3

REPORT INFORMATION
  Report Type: 
  Country: None (occurrence: None)
  Receive Date: 20080828
  Receipt Date: 20080828
  Transmission Date: 20090109
  Serious: Yes (Hospitalization)
  Sender: FDA-Public Use
  Company Number: None

PATIENT
  Sex: Male
  Weight: 82.5 kg

DRUGS (3)
  1. TEMOZOLOMIDE [Suspect]
     Dosage: 3900 MG
  2. THALOMID [Suspect]
     Dosage: 8000 MG
  3. ACCUTANE [Suspect]
     Dosage: 2400 MG

REACTIONS (6)
  - ALVEOLITIS ALLERGIC [None]
  - DYSPNOEA [None]
  - LUNG INFILTRATION [None]
  - LYMPHOCYTE COUNT DECREASED [None]
  - OPPORTUNISTIC INFECTION [None]
  - PYREXIA [None]
